FAERS Safety Report 4414185-4 (Version None)
Quarter: 2004Q3

REPORT INFORMATION
  Report Type: 
  Country: None (occurrence: None)
  Receive Date: 20040728
  Receipt Date: 20040602
  Transmission Date: 20050211
  Serious: Yes (Hospitalization, Other)
  Sender: FDA-Public Use
  Company Number: 2004-UK-00716UK

PATIENT
  Sex: Female

DRUGS (3)
  1. NEVIRAPINE           (NEVIRAPINE) [Suspect]
  2. AZT [Suspect]
  3. DDI (DIDASONIDE) [Suspect]

REACTIONS (2)
  - HAEMATEMESIS [None]
  - PORTAL VEIN THROMBOSIS [None]
